FAERS Safety Report 10764979 (Version 1)
Quarter: 2015Q1

REPORT INFORMATION
  Report Type: Spontaneous
  Country: US (occurrence: None)
  Receive Date: 20150204
  Receipt Date: 20150204
  Transmission Date: 20150721
  Serious: Yes (Hospitalization)
  Sender: FDA-Public Use
  Company Number: None

PATIENT
  Age: 66 Year
  Sex: Female
  Weight: 84 kg

DRUGS (3)
  1. BEVACIZUMAB (RHUMAB VEGF) [Suspect]
     Active Substance: BEVACIZUMAB
  2. TAXOL [Suspect]
     Active Substance: PACLITAXEL
  3. MILK OF MAGNESIA [Concomitant]
     Active Substance: MAGNESIUM HYDROXIDE

REACTIONS (8)
  - Fatigue [None]
  - Neutropenia [None]
  - Dyspnoea [None]
  - Diarrhoea [None]
  - Dehydration [None]
  - Weight decreased [None]
  - Skin ulcer [None]
  - White blood cell count decreased [None]

NARRATIVE: CASE EVENT DATE: 20150130
